FAERS Safety Report 9503332 (Version 1)
Quarter: 2013Q3

REPORT INFORMATION
  Report Type: Spontaneous
  Country: US (occurrence: US)
  Receive Date: 20130906
  Receipt Date: 20130906
  Transmission Date: 20140515
  Serious: Yes (Other)
  Sender: FDA-Public Use
  Company Number: US-PFIZER INC-2013253376

PATIENT
  Age: 38 Year
  Sex: Female
  Weight: 68.03 kg

DRUGS (2)
  1. EPIPEN [Suspect]
     Indication: HYPERSENSITIVITY
     Dosage: 0.3 MG
     Route: 030
  2. PROPANOLOL [Concomitant]
     Indication: SINUS TACHYCARDIA
     Dosage: 20 MG, 1X/DAY
     Route: 048

REACTIONS (3)
  - Accidental exposure to product [Not Recovered/Not Resolved]
  - Injection site pain [Not Recovered/Not Resolved]
  - Injection site discolouration [Not Recovered/Not Resolved]
